FAERS Safety Report 9878757 (Version 2)
Quarter: 2014Q1

REPORT INFORMATION
  Report Type: Spontaneous
  Country: US (occurrence: US)
  Receive Date: 20140206
  Receipt Date: 20140227
  Transmission Date: 20141002
  Serious: Yes (Hospitalization)
  Sender: FDA-Public Use
  Company Number: US-GLAXOSMITHKLINE-A1058526A

PATIENT
  Age: 69 Year
  Sex: Female

DRUGS (5)
  1. MEPRON [Suspect]
     Indication: CHRONIC LYMPHOCYTIC LEUKAEMIA
     Dosage: 2TSP PER DAY
     Route: 048
     Dates: start: 201311
  2. PREDNISONE [Concomitant]
  3. OMEPRAZOLE [Concomitant]
  4. FOLIC ACID [Concomitant]
  5. ACYCLOVIR [Concomitant]

REACTIONS (4)
  - Pulmonary thrombosis [Recovering/Resolving]
  - Oxygen saturation decreased [Recovering/Resolving]
  - Haemoglobin decreased [Recovering/Resolving]
  - Dyspnoea [Recovering/Resolving]
